FAERS Safety Report 9424116 (Version 1)
Quarter: 2013Q3

REPORT INFORMATION
  Report Type: Spontaneous
  Country: US (occurrence: US)
  Receive Date: 20130729
  Receipt Date: 20130729
  Transmission Date: 20140515
  Serious: Yes (Other)
  Sender: FDA-Public Use
  Company Number: US-AMGEN-USASP2013032716

PATIENT
  Age: 50 Year
  Sex: Female
  Weight: 56.69 kg

DRUGS (4)
  1. ENBREL [Suspect]
     Indication: RHEUMATOID ARTHRITIS
     Dosage: 50 MG, QWK
     Route: 058
     Dates: start: 20130501, end: 20130710
  2. ENBREL [Suspect]
  3. ARAVA [Concomitant]
     Indication: RHEUMATOID ARTHRITIS
     Dosage: 10 MG, QD
     Route: 048
     Dates: start: 20121030
  4. METHOTREXATE [Concomitant]
     Indication: RHEUMATOID ARTHRITIS
     Dosage: 25 MG, QWK
     Route: 058
     Dates: start: 200901, end: 20130326

REACTIONS (13)
  - Haemolysis [Not Recovered/Not Resolved]
  - Depression [Not Recovered/Not Resolved]
  - Headache [Recovering/Resolving]
  - Nausea [Recovered/Resolved]
  - Joint swelling [Not Recovered/Not Resolved]
  - Pain [Unknown]
  - Local swelling [Not Recovered/Not Resolved]
  - Musculoskeletal stiffness [Not Recovered/Not Resolved]
  - Joint stiffness [Not Recovered/Not Resolved]
  - Fatigue [Not Recovered/Not Resolved]
  - Burning sensation [Recovered/Resolved]
  - Anaemia [Not Recovered/Not Resolved]
  - Injection site pain [Recovered/Resolved]
